FAERS Safety Report 14999485 (Version 1)
Quarter: 2018Q2

REPORT INFORMATION
  Report Type: Spontaneous
  Country: GB (occurrence: GB)
  Receive Date: 20180612
  Receipt Date: 20180612
  Transmission Date: 20180711
  Serious: Yes (Hospitalization, Disabling)
  Sender: FDA-Public Use
  Company Number: GB-SUN PHARMACEUTICAL INDUSTRIES LTD-2018RR-175476

PATIENT
  Age: 26 Year
  Sex: Female
  Weight: 52 kg

DRUGS (6)
  1. DIAZEPAM. [Concomitant]
     Active Substance: DIAZEPAM
     Indication: PRODUCT USED FOR UNKNOWN INDICATION
     Dosage: ()
     Route: 065
  2. SERTRALINE [Suspect]
     Active Substance: SERTRALINE HYDROCHLORIDE
     Indication: PANIC ATTACK
     Dosage: 100 MG, UNK
     Route: 065
     Dates: start: 201711, end: 201801
  3. SERTRALINE [Suspect]
     Active Substance: SERTRALINE HYDROCHLORIDE
     Indication: ANXIETY
     Dosage: 150 MG, UNK
     Route: 065
     Dates: start: 201801, end: 201804
  4. BOOTS IBUPROFEN [Concomitant]
     Indication: PRODUCT USED FOR UNKNOWN INDICATION
     Dosage: ()
     Route: 065
  5. GINSENG [Concomitant]
     Active Substance: ASIAN GINSENG
     Indication: PRODUCT USED FOR UNKNOWN INDICATION
     Dosage: ()
     Route: 065
  6. SERTRALINE [Suspect]
     Active Substance: SERTRALINE HYDROCHLORIDE
     Dosage: 50 MG, UNK
     Route: 065
     Dates: start: 201710, end: 201711

REACTIONS (29)
  - Dry mouth [Recovered/Resolved]
  - Drug withdrawal syndrome [Unknown]
  - Suicidal ideation [Recovered/Resolved]
  - Dizziness [Recovered/Resolved]
  - Aggression [Recovered/Resolved]
  - Epistaxis [Recovered/Resolved]
  - Tachycardia [Recovered/Resolved]
  - Fatigue [Recovered/Resolved]
  - Psychogenic seizure [Unknown]
  - Loss of consciousness [Recovered/Resolved]
  - Mood altered [Unknown]
  - Headache [Recovered/Resolved]
  - Disorientation [Recovered/Resolved]
  - Memory impairment [Unknown]
  - Abnormal loss of weight [Recovering/Resolving]
  - Sleep disorder [Recovered/Resolved]
  - Intentional self-injury [Recovered/Resolved]
  - Action tremor [Recovered/Resolved]
  - Night sweats [Recovered/Resolved]
  - Nightmare [Recovered/Resolved]
  - Muscular weakness [Recovered/Resolved]
  - Haematochezia [Recovered/Resolved]
  - Overdose [Unknown]
  - Headache [Unknown]
  - Nausea [Recovered/Resolved]
  - Drug administration error [Unknown]
  - Hallucination [Recovered/Resolved]
  - Seizure [Recovered/Resolved]
  - Diarrhoea [Recovered/Resolved]

NARRATIVE: CASE EVENT DATE: 20171011
